FAERS Safety Report 7639001-9 (Version None)
Quarter: 2011Q3

REPORT INFORMATION
  Report Type: 
  Country: None (occurrence: None)
  Receive Date: 20110727
  Receipt Date: 20110722
  Transmission Date: 20111222
  Serious: Yes (Other)
  Sender: FDA-Public Use
  Company Number: US-PFIZER INC-2011168349

PATIENT
  Sex: Male

DRUGS (1)
  1. CHANTIX [Suspect]
     Dosage: UNK
     Dates: start: 20090326

REACTIONS (7)
  - INSOMNIA [None]
  - ANGER [None]
  - ANXIETY [None]
  - ABNORMAL DREAMS [None]
  - SUICIDE ATTEMPT [None]
  - PANIC ATTACK [None]
  - DEPRESSION [None]
